FAERS Safety Report 9239760 (Version 1)
Quarter: 2013Q2

REPORT INFORMATION
  Report Type: Spontaneous
  Country: PT (occurrence: PT)
  Receive Date: 20130418
  Receipt Date: 20130418
  Transmission Date: 20140414
  Serious: Yes (Hospitalization)
  Sender: FDA-Public Use
  Company Number: PT-PFIZER INC-2013115402

PATIENT
  Age: 17 Year
  Sex: Female

DRUGS (1)
  1. RAPAMUNE [Suspect]
     Indication: PROPHYLAXIS AGAINST TRANSPLANT REJECTION
     Dosage: 1 MG, 1X/DAY
     Route: 048

REACTIONS (5)
  - Off label use [Recovering/Resolving]
  - Confusional state [Recovering/Resolving]
  - Hyperammonaemia [Recovering/Resolving]
  - Blood urea increased [Recovering/Resolving]
  - Toxicity to various agents [Recovering/Resolving]
